FAERS Safety Report 10610893 (Version 2)
Quarter: 2014Q4

REPORT INFORMATION
  Report Type: Spontaneous
  Country: US (occurrence: None)
  Receive Date: 20141124
  Receipt Date: 20141128
  Transmission Date: 20150529
  Serious: Yes (Hospitalization, Other)
  Sender: FDA-Public Use
  Company Number: ADR-2014-02199

PATIENT
  Age: 36 Year
  Sex: Male

DRUGS (19)
  1. SINGULAIR [Suspect]
     Active Substance: MONTELUKAST SODIUM
  2. REQUIP [Suspect]
     Active Substance: ROPINIROLE HYDROCHLORIDE
  3. NOVOLOG [Suspect]
     Active Substance: INSULIN ASPART
  4. EFFEXOR XR [Suspect]
     Active Substance: VENLAFAXINE HYDROCHLORIDE
  5. ENULOSE [Suspect]
     Active Substance: LACTULOSE
  6. LISINOPRIL. [Suspect]
     Active Substance: LISINOPRIL
  7. ZOLOFT [Suspect]
     Active Substance: SERTRALINE HYDROCHLORIDE
  8. LANTUS [Suspect]
     Active Substance: INSULIN GLARGINE
  9. NYSTATIN. [Suspect]
     Active Substance: NYSTATIN
  10. LIORESAL [Suspect]
     Active Substance: BACLOFEN
     Indication: MUSCLE SPASTICITY
  11. MELATONIN [Suspect]
     Active Substance: MELATONIN
  12. PRILOSEC [Suspect]
     Active Substance: OMEPRAZOLE MAGNESIUM
  13. MILK OF MAGNESIA [Suspect]
     Active Substance: MAGNESIUM HYDROXIDE
  14. ASPIRIN. [Suspect]
     Active Substance: ASPIRIN
  15. LIPITOR [Suspect]
     Active Substance: ATORVASTATIN CALCIUM
  16. LAMICTAL [Suspect]
     Active Substance: LAMOTRIGINE
  17. MEROPENEM. [Suspect]
     Active Substance: MEROPENEM
  18. LOPRESSOR [Suspect]
     Active Substance: METOPROLOL TARTRATE
  19. REMERON [Suspect]
     Active Substance: MIRTAZAPINE

REACTIONS (8)
  - Muscle spasms [None]
  - Drug dose omission [None]
  - Drug withdrawal syndrome [None]
  - Treatment noncompliance [None]
  - Urinary tract infection [None]
  - Skin ulcer [None]
  - Staphylococcal infection [None]
  - Hyperhidrosis [None]
